FAERS Safety Report 16292377 (Version 2)
Quarter: 2021Q1

REPORT INFORMATION
  Report Type: Spontaneous
  Country: US (occurrence: US)
  Receive Date: 20190509
  Receipt Date: 20210218
  Transmission Date: 20210419
  Serious: Yes (Death, Other)
  Sender: FDA-Public Use
  Company Number: US-ASTRAZENECA-2019SE62738

PATIENT
  Age: 63 Year
  Sex: Male

DRUGS (44)
  1. AZITHROMYCIN ANHYDROUS. [Concomitant]
     Active Substance: AZITHROMYCIN ANHYDROUS
     Indication: INFECTION
     Dates: start: 200711, end: 200711
  2. TRAMADOL. [Concomitant]
     Active Substance: TRAMADOL
     Indication: PAIN
     Dates: start: 200809, end: 201211
  3. ALPHAGAN P [Concomitant]
     Active Substance: BRIMONIDINE TARTRATE
  4. ALFUZOSIN [Concomitant]
     Active Substance: ALFUZOSIN
  5. FLECAINIDE [Concomitant]
     Active Substance: FLECAINIDE
  6. LIDOCAINE. [Concomitant]
     Active Substance: LIDOCAINE
  7. LISINOPRIL. [Concomitant]
     Active Substance: LISINOPRIL
     Indication: HYPERTENSION
     Dates: start: 200605, end: 201110
  8. HYDRALAZINE [Concomitant]
     Active Substance: HYDRALAZINE HYDROCHLORIDE
     Indication: HYPERTENSION
     Dates: start: 201205, end: 201404
  9. AMOXICILLIN. [Concomitant]
     Active Substance: AMOXICILLIN
     Indication: INFECTION
     Dates: start: 201901, end: 201901
  10. ACCOLATE [Concomitant]
     Active Substance: ZAFIRLUKAST
  11. CLONIDINE. [Concomitant]
     Active Substance: CLONIDINE
  12. NEXIUM [Suspect]
     Active Substance: ESOMEPRAZOLE MAGNESIUM
     Indication: GASTROOESOPHAGEAL REFLUX DISEASE
     Route: 048
     Dates: start: 2001, end: 2018
  13. PREVACID [Suspect]
     Active Substance: LANSOPRAZOLE
     Indication: GASTROOESOPHAGEAL REFLUX DISEASE
     Route: 065
     Dates: start: 200001, end: 201312
  14. NAPROXEN. [Concomitant]
     Active Substance: NAPROXEN
     Indication: PAIN
     Dates: start: 201501, end: 201502
  15. RESTASIS [Concomitant]
     Active Substance: CYCLOSPORINE
  16. PENICILLIN [Concomitant]
     Active Substance: PENICILLIN
     Indication: INFECTION
     Dates: start: 200805, end: 200806
  17. VERAPAMIL [Concomitant]
     Active Substance: VERAPAMIL HYDROCHLORIDE
  18. METOLAZONE. [Concomitant]
     Active Substance: METOLAZONE
  19. THEOPHYLLINE [Concomitant]
     Active Substance: THEOPHYLLINE ANHYDROUS
  20. DORZOLAMIDE/TIMOLOL [Concomitant]
     Active Substance: DORZOLAMIDE\TIMOLOL
  21. CEPHALEXIN. [Concomitant]
     Active Substance: CEPHALEXIN
  22. PREVACID [Suspect]
     Active Substance: LANSOPRAZOLE
     Indication: GASTROOESOPHAGEAL REFLUX DISEASE
     Route: 065
     Dates: start: 2000, end: 201306
  23. PREVACID [Suspect]
     Active Substance: LANSOPRAZOLE
     Indication: GASTROOESOPHAGEAL REFLUX DISEASE
     Dosage: GENERIC
     Route: 065
     Dates: end: 201907
  24. PREDNISONE. [Concomitant]
     Active Substance: PREDNISONE
  25. NOVOLOG [Concomitant]
     Active Substance: INSULIN ASPART
  26. DOXAZOSIN [Concomitant]
     Active Substance: DOXAZOSIN MESYLATE
  27. ACTONEL [Concomitant]
     Active Substance: RISEDRONATE SODIUM
  28. ISOSORBIDE MONONITRATE. [Concomitant]
     Active Substance: ISOSORBIDE MONONITRATE
  29. ONDANSETRON [Concomitant]
     Active Substance: ONDANSETRON
  30. POLYETHYLENE GLYCOL [Concomitant]
     Active Substance: POLYETHYLENE GLYCOLS
  31. FUROSEMIDE. [Concomitant]
     Active Substance: FUROSEMIDE
     Indication: FLUID RETENTION
     Dates: start: 200603, end: 201302
  32. ALLOPURINOL. [Concomitant]
     Active Substance: ALLOPURINOL
     Indication: ACIDOSIS
     Dates: start: 200611, end: 201308
  33. PREDNISOLONE. [Concomitant]
     Active Substance: PREDNISOLONE
  34. MINOXIDIL. [Concomitant]
     Active Substance: MINOXIDIL
  35. LANTUS [Concomitant]
     Active Substance: INSULIN GLARGINE
  36. LOTEMAX [Concomitant]
     Active Substance: LOTEPREDNOL ETABONATE
  37. MONTELUKAST [Concomitant]
     Active Substance: MONTELUKAST SODIUM
  38. ELIQUIS [Concomitant]
     Active Substance: APIXABAN
  39. NEXIUM [Suspect]
     Active Substance: ESOMEPRAZOLE MAGNESIUM
     Indication: GASTROOESOPHAGEAL REFLUX DISEASE
     Route: 048
     Dates: start: 200001, end: 201312
  40. LIPITOR [Concomitant]
     Active Substance: ATORVASTATIN CALCIUM
     Indication: BLOOD CHOLESTEROL INCREASED
     Dates: start: 200604, end: 200704
  41. CIPROFLOXACIN. [Concomitant]
     Active Substance: CIPROFLOXACIN
     Indication: INFECTION
     Dates: start: 200904, end: 200905
  42. ALBUTEROL. [Concomitant]
     Active Substance: ALBUTEROL
  43. CLOTRIMAZOL [Concomitant]
     Active Substance: CLOTRIMAZOLE
  44. BREO ELLIPTA [Concomitant]
     Active Substance: FLUTICASONE FUROATE\VILANTEROL TRIFENATATE

REACTIONS (2)
  - Chronic kidney disease [Unknown]
  - Acute kidney injury [Unknown]

NARRATIVE: CASE EVENT DATE: 2013
